FAERS Safety Report 13031539 (Version 3)
Quarter: 2017Q1

REPORT INFORMATION
  Report Type: Spontaneous
  Country: JP (occurrence: JP)
  Receive Date: 20161215
  Receipt Date: 20170117
  Transmission Date: 20170428
  Serious: Yes (Hospitalization)
  Sender: FDA-Public Use
  Company Number: JP-ALLERGAN-1680409US

PATIENT
  Age: 83 Year
  Sex: Male

DRUGS (2)
  1. HARNAL [Concomitant]
     Active Substance: TAMSULOSIN HYDROCHLORIDE
     Indication: DEMENTIA
     Dosage: UNK
     Dates: start: 2003
  2. MEMANTINE HCL - BP [Suspect]
     Active Substance: MEMANTINE
     Indication: DEMENTIA
     Dosage: 20 MG, QD
     Route: 048
     Dates: start: 2014, end: 20161203

REACTIONS (2)
  - Meningitis viral [Unknown]
  - Rhabdomyolysis [Recovered/Resolved]
